FAERS Safety Report 4456088-5 (Version None)
Quarter: 2004Q3

REPORT INFORMATION
  Report Type: 
  Country: None (occurrence: None)
  Receive Date: 20040922
  Receipt Date: 20040210
  Transmission Date: 20050211
  Serious: Yes (Other)
  Sender: FDA-Public Use
  Company Number: PHBS2004CA01948

PATIENT
  Age: 43 Year
  Sex: Female
  Weight: 56 kg

DRUGS (7)
  1. ZELNORM [Suspect]
     Indication: IRRITABLE BOWEL SYNDROME
     Dosage: 6 MG, BID
     Route: 048
     Dates: start: 20030801
  2. FLOVENT [Concomitant]
  3. SEREVENT [Concomitant]
  4. DOMPERIDONE [Concomitant]
  5. CEFZIL [Concomitant]
     Indication: SINUSITIS
  6. FLONASE [Concomitant]
  7. NEXIUM [Concomitant]

REACTIONS (2)
  - BLOOD PROLACTIN INCREASED [None]
  - GALACTORRHOEA [None]
